FAERS Safety Report 18984767 (Version 1)
Quarter: 2021Q1

REPORT INFORMATION
  Report Type: Report from Study
  Country: None (occurrence: US)
  Receive Date: 20210308
  Receipt Date: 20210308
  Transmission Date: 20210420
  Serious: Yes (Other)
  Sender: FDA-Public Use
  Company Number: US-ABBVIE-21K-163-3801463-00

PATIENT
  Age: 13 Year
  Sex: Female
  Weight: 49.94 kg

DRUGS (1)
  1. HUMIRA [Suspect]
     Active Substance: ADALIMUMAB
     Indication: JUVENILE IDIOPATHIC ARTHRITIS
     Dosage: CF
     Route: 058
     Dates: start: 20200611

REACTIONS (6)
  - Vaginal odour [Not Recovered/Not Resolved]
  - Injection site nodule [Recovered/Resolved]
  - Urticaria [Recovering/Resolving]
  - Vaginal discharge [Not Recovered/Not Resolved]
  - Appendicitis [Unknown]
  - Throat tightness [Recovering/Resolving]

NARRATIVE: CASE EVENT DATE: 20210120
